FAERS Safety Report 9950676 (Version 3)
Quarter: 2014Q4

REPORT INFORMATION
  Report Type: Spontaneous
  Country: US (occurrence: US)
  Receive Date: 20140304
  Receipt Date: 20141126
  Transmission Date: 20150529
  Serious: Yes (Hospitalization)
  Sender: FDA-Public Use
  Company Number: US-BAYER-2014-029911

PATIENT
  Age: 26 Year
  Sex: Female
  Weight: 81.63 kg

DRUGS (3)
  1. MIRENA [Suspect]
     Active Substance: LEVONORGESTREL
     Indication: CONTRACEPTION
     Dosage: 20 MCG/24HR, CONT
     Route: 015
     Dates: start: 200305, end: 200705
  2. DEPAKOTE [Concomitant]
     Active Substance: DIVALPROEX SODIUM
  3. KLONOPIN [Concomitant]
     Active Substance: CLONAZEPAM

REACTIONS (9)
  - Depression [None]
  - Panic attack [None]
  - Emotional distress [None]
  - Pain [None]
  - Uterine perforation [None]
  - Drug ineffective [None]
  - Injury [None]
  - Ectopic pregnancy with contraceptive device [None]
  - Anxiety [None]

NARRATIVE: CASE EVENT DATE: 2003
